FAERS Safety Report 7277457-4 (Version None)
Quarter: 2011Q1

REPORT INFORMATION
  Report Type: 
  Country: None (occurrence: None)
  Receive Date: 20110207
  Receipt Date: 20110201
  Transmission Date: 20110831
  Serious: Yes (Life-Threatening, Hospitalization)
  Sender: FDA-Public Use
  Company Number: DE-BRISTOL-MYERS SQUIBB COMPANY-15522923

PATIENT
  Age: 52 Year
  Sex: Male

DRUGS (3)
  1. CETUXIMAB [Suspect]
     Indication: HEAD AND NECK CANCER
     Dosage: 400 MG/M2:30SEP10-UNK ON DAY 1 OF CYCLE 1 250MG/M2 WEEKLY :ONG LAST DOSE:26JAN11
     Route: 042
  2. PEMETREXED DISODIUM [Suspect]
     Indication: HEAD AND NECK CANCER
     Dosage: LAST DOSE:13JAN11
     Route: 042
     Dates: start: 20100930
  3. CISPLATIN [Suspect]
     Indication: HEAD AND NECK CANCER
     Dosage: LAST DOSE:13JAN11
     Route: 042
     Dates: start: 20100930

REACTIONS (1)
  - PULMONARY EMBOLISM [None]
